FAERS Safety Report 5011523-9 (Version None)
Quarter: 2006Q2

REPORT INFORMATION
  Report Type: 
  Country: None (occurrence: None)
  Receive Date: 20060404
  Receipt Date: 20060123
  Transmission Date: 20061013
  Serious: No
  Sender: FDA-Public Use
  Company Number: US200601003970

PATIENT
  Age: 46 Year
  Sex: Female

DRUGS (4)
  1. PROZAC [Suspect]
     Indication: DEPRESSION
     Dosage: 20 MG, DAILY (1/D)
     Dates: end: 20040101
  2. CYMBALTA [Suspect]
     Dates: start: 20060123
  3. LEVOXYL [Concomitant]
  4. PREMARIN [Concomitant]

REACTIONS (4)
  - DECREASED APPETITE [None]
  - DRY MOUTH [None]
  - INSOMNIA [None]
  - WEIGHT DECREASED [None]
